FAERS Safety Report 6214200-1 (Version None)
Quarter: 2009Q2

REPORT INFORMATION
  Report Type: 
  Country: None (occurrence: None)
  Receive Date: 20090604
  Receipt Date: 20090529
  Transmission Date: 20091009
  Serious: Yes (Life-Threatening, Hospitalization, Other)
  Sender: FDA-Public Use
  Company Number: FR-BAYER-200912865GPV

PATIENT
  Age: 70 Year
  Sex: Female
  Weight: 55 kg

DRUGS (14)
  1. MABCAMPATH [Suspect]
     Indication: T-CELL PROLYMPHOCYTIC LEUKAEMIA
     Dosage: TOTAL DAILY DOSE: 3 MG
     Route: 058
     Dates: start: 20090128, end: 20090128
  2. MABCAMPATH [Suspect]
     Dosage: TOTAL DAILY DOSE: 10 MG
     Route: 058
     Dates: start: 20090129, end: 20090129
  3. MABCAMPATH [Suspect]
     Dosage: TOTAL DAILY DOSE: 30 MG
     Route: 058
     Dates: start: 20090130, end: 20090130
  4. FLUDARA [Suspect]
     Indication: T-CELL PROLYMPHOCYTIC LEUKAEMIA
     Dosage: 4 COURSES
     Route: 042
     Dates: start: 20090201
  5. FASTURTEC [Suspect]
     Indication: PROPHYLAXIS
     Route: 065
     Dates: start: 20090101
  6. ZYLORIC [Suspect]
     Indication: PROPHYLAXIS
     Route: 065
     Dates: start: 20090101
  7. ENDOXAN [Concomitant]
     Indication: T-CELL PROLYMPHOCYTIC LEUKAEMIA
     Dosage: 4 COURSES
     Dates: start: 20090201, end: 20090101
  8. VALACYCLOVIR HCL [Concomitant]
     Route: 048
  9. BACTRIM DS [Concomitant]
     Route: 048
  10. ZYLORIC [Concomitant]
     Route: 048
  11. ARANESP [Concomitant]
  12. PARACETAMOL [Concomitant]
     Route: 048
     Dates: start: 20090128
  13. ATARAX [Concomitant]
     Route: 048
     Dates: start: 20090128, end: 20090130
  14. SOLUPRED [Concomitant]
     Dates: start: 20090128, end: 20090130

REACTIONS (12)
  - BLOOD BLISTER [None]
  - CAPILLARY LEAK SYNDROME [None]
  - DISSEMINATED INTRAVASCULAR COAGULATION [None]
  - FEBRILE BONE MARROW APLASIA [None]
  - GENERALISED OEDEMA [None]
  - GINGIVAL BLEEDING [None]
  - HAEMATOMA [None]
  - INJECTION SITE HAEMORRHAGE [None]
  - OLIGURIA [None]
  - RENAL FAILURE [None]
  - RESPIRATORY FAILURE [None]
  - TUMOUR LYSIS SYNDROME [None]
